FAERS Safety Report 8156906-3 (Version None)
Quarter: 2012Q1

REPORT INFORMATION
  Report Type: 
  Country: None (occurrence: None)
  Receive Date: 20120222
  Receipt Date: 20120210
  Transmission Date: 20120608
  Serious: Yes (Hospitalization, Other)
  Sender: FDA-Public Use
  Company Number: US-BRISTOL-MYERS SQUIBB COMPANY-16397531

PATIENT
  Age: 47 Year
  Sex: Male
  Weight: 112 kg

DRUGS (17)
  1. METFORMIN HCL [Suspect]
  2. LANTUS [Suspect]
     Dosage: 1 DF : 15U,QAM,LANTUS INSULIN
  3. COUMADIN [Suspect]
     Dosage: 1DF:12.5-13.5MG,2.5MG,10MG,INCD 3/WK-13.5MG/D,15MG,12.5MG,15MGOD,12.5MG,OFF JL98-OT98,OT07,10MG,40MG
     Dates: start: 19970101
  4. ACTOS [Suspect]
     Dosage: QAM
  5. BENAZEPRIL HYDROCHLORIDE [Concomitant]
     Dosage: QPM
  6. ZINC SULFATE [Concomitant]
  7. CALCIUM CITRATE [Concomitant]
     Dosage: 1 DF : 630 UNITS NOS,CALCIUM CITRATE + D
  8. CALCIUM [Concomitant]
     Dosage: CALCIUM D
  9. LOVENOX [Suspect]
  10. VITAMIN TAB [Concomitant]
     Dosage: MEN'S HEALTH FORMULA
  11. COQ10 [Concomitant]
  12. UROXATRAL [Concomitant]
     Dosage: QPM
  13. OMEGA [Concomitant]
  14. AMLODIPINE [Concomitant]
     Dosage: QAM
  15. PRAVASTATIN [Concomitant]
     Dosage: QPM
  16. GLIMEPIRIDE [Suspect]
     Dosage: QAM
  17. MAGNESIUM [Concomitant]

REACTIONS (5)
  - DEEP VEIN THROMBOSIS [None]
  - PNEUMONIA [None]
  - BLOOD GLUCOSE DECREASED [None]
  - PULMONARY THROMBOSIS [None]
  - INTERNATIONAL NORMALISED RATIO FLUCTUATION [None]
